FAERS Safety Report 18074097 (Version 1)
Quarter: 2020Q3

REPORT INFORMATION
  Report Type: Spontaneous
  Country: MT (occurrence: MT)
  Receive Date: 20200727
  Receipt Date: 20200727
  Transmission Date: 20201103
  Serious: Yes (Other)
  Sender: FDA-Public Use
  Company Number: MT-NORTHSTAR HEALTHCARE HOLDINGS-MT-2020NSR000016

PATIENT
  Age: 4 Month
  Sex: Female

DRUGS (1)
  1. PROPRANOLOL HYDROCHLORIDE. [Suspect]
     Active Substance: PROPRANOLOL HYDROCHLORIDE
     Indication: INFANTILE HAEMANGIOMA
     Dosage: 1.5 MG/KG, QD, IN THREE DIVIDED DOSES
     Route: 065

REACTIONS (4)
  - Ulcerated haemangioma [Recovered/Resolved]
  - Wound infection [Recovered/Resolved]
  - Wound necrosis [Recovered/Resolved]
  - Off label use [Unknown]
